FAERS Safety Report 13408488 (Version 4)
Quarter: 2022Q2

REPORT INFORMATION
  Report Type: Spontaneous
  Country: US (occurrence: US)
  Receive Date: 20170406
  Receipt Date: 20220628
  Transmission Date: 20220721
  Serious: Yes (Other)
  Sender: FDA-Public Use
  Company Number: US-JNJFOC-20170223647

PATIENT
  Age: 9 Year
  Sex: Male

DRUGS (2)
  1. RISPERDAL [Suspect]
     Active Substance: RISPERIDONE
     Indication: Autism spectrum disorder
     Dosage: DOSE: IN VARYING DOSES OF 0.5 MG AND 1 MG.
     Route: 048
     Dates: start: 20040726, end: 20050331
  2. RISPERDAL [Suspect]
     Active Substance: RISPERIDONE
     Indication: Bipolar disorder
     Dosage: DOSE: IN VARYING DOSES OF 0.5 MG AND 1 MG.
     Route: 048
     Dates: start: 2005, end: 20050920

REACTIONS (3)
  - Dystonia [Unknown]
  - Emotional disorder [Unknown]
  - Gynaecomastia [Unknown]
